FAERS Safety Report 12431676 (Version 2)
Quarter: 2016Q3

REPORT INFORMATION
  Report Type: Spontaneous
  Country: JP (occurrence: JP)
  Receive Date: 20160603
  Receipt Date: 20160722
  Transmission Date: 20161109
  Serious: Yes (Life-Threatening, Hospitalization, Other)
  Sender: FDA-Public Use
  Company Number: JP-TAKEDA-2016TJP010965

PATIENT
  Age: 80 Year
  Sex: Male
  Weight: 35 kg

DRUGS (6)
  1. AMBROXOL HYDROCHLORIDE [Concomitant]
     Active Substance: AMBROXOL HYDROCHLORIDE
     Dosage: 15 MG, TID
     Route: 048
  2. LANSAP [Suspect]
     Active Substance: AMOXICILLIN\CLARITHROMYCIN\LANSOPRAZOLE
     Indication: HELICOBACTER INFECTION
     Dosage: 0.5 DF, BID
     Route: 048
     Dates: start: 20141129, end: 20141205
  3. ADALAT [Concomitant]
     Active Substance: NIFEDIPINE
     Dosage: 40 MG, QD
     Route: 048
  4. ERYTHROCIN /00020904/ [Suspect]
     Active Substance: ERYTHROMYCIN ETHYLSUCCINATE
     Indication: PRODUCT USED FOR UNKNOWN INDICATION
     Dosage: 0.5 G, QD
     Route: 048
     Dates: end: 20141208
  5. SINGULAIR [Concomitant]
     Active Substance: MONTELUKAST SODIUM
     Dosage: 10 MG, QD
     Route: 048
  6. HOKUNALIN                          /00654901/ [Concomitant]
     Active Substance: TULOBUTEROL
     Dosage: 1 MG, QD
     Route: 062

REACTIONS (8)
  - Respiratory failure [Recovering/Resolving]
  - Bradycardia [Recovered/Resolved]
  - Hypotension [None]
  - Activities of daily living impaired [None]
  - Hyperkalaemia [Recovered/Resolved]
  - Rhabdomyolysis [Recovering/Resolving]
  - Haemodialysis [None]
  - Acute kidney injury [Recovering/Resolving]

NARRATIVE: CASE EVENT DATE: 20141208
